FAERS Safety Report 10045580 (Version 5)
Quarter: 2015Q1

REPORT INFORMATION
  Report Type: Spontaneous
  Country: US (occurrence: US)
  Receive Date: 20140328
  Receipt Date: 20150210
  Transmission Date: 20150720
  Serious: Yes (Death, Disabling, Other)
  Sender: FDA-Public Use
  Company Number: US-PFIZER INC-2014087273

PATIENT
  Age: 41 Year
  Sex: Male

DRUGS (1)
  1. DEPO-MEDROL [Suspect]
     Active Substance: METHYLPREDNISOLONE ACETATE
     Indication: BACK PAIN
     Dosage: 320 MG, UNK
     Route: 008
     Dates: start: 20130125, end: 20130125

REACTIONS (19)
  - Product use issue [Unknown]
  - Abasia [Unknown]
  - Rash [Not Recovered/Not Resolved]
  - Functional gastrointestinal disorder [Unknown]
  - Dysstasia [Not Recovered/Not Resolved]
  - Body surface area decreased [Not Recovered/Not Resolved]
  - Post-traumatic pain [Not Recovered/Not Resolved]
  - Activities of daily living impaired [Not Recovered/Not Resolved]
  - Arachnoiditis [Fatal]
  - Malaise [Not Recovered/Not Resolved]
  - Weight decreased [Not Recovered/Not Resolved]
  - Nervous system disorder [Not Recovered/Not Resolved]
  - Burning sensation [Unknown]
  - Fibroma [Not Recovered/Not Resolved]
  - Drug ineffective [Unknown]
  - Bladder dysfunction [Unknown]
  - Completed suicide [Fatal]
  - General physical health deterioration [Not Recovered/Not Resolved]
  - Pain [Not Recovered/Not Resolved]

NARRATIVE: CASE EVENT DATE: 2013
